FAERS Safety Report 18035870 (Version 12)
Quarter: 2021Q1

REPORT INFORMATION
  Report Type: Spontaneous
  Country: US (occurrence: US)
  Receive Date: 20200717
  Receipt Date: 20210326
  Transmission Date: 20210419
  Serious: No
  Sender: FDA-Public Use
  Company Number: US-BIOGEN-2020BI00893307

PATIENT
  Age: 61 Year
  Sex: Female

DRUGS (7)
  1. PLEGRIDY [Suspect]
     Active Substance: PEGINTERFERON BETA-1A
     Route: 065
     Dates: start: 20200714
  2. PLEGRIDY [Suspect]
     Active Substance: PEGINTERFERON BETA-1A
     Dosage: PATIENT REPORTED STARTED PLEGRIDY BEGINNING OF JULY AND INJECTED 63MCG PEN ON DAY 1, THEN 94MCG P...
     Route: 058
     Dates: start: 202007
  3. PLEGRIDY [Suspect]
     Active Substance: PEGINTERFERON BETA-1A
     Dosage: 125MCG/.5
     Route: 058
     Dates: start: 20200714
  4. PLEGRIDY [Suspect]
     Active Substance: PEGINTERFERON BETA-1A
     Route: 065
  5. PLEGRIDY [Suspect]
     Active Substance: PEGINTERFERON BETA-1A
     Indication: MULTIPLE SCLEROSIS
     Route: 065
     Dates: start: 202007
  6. PLEGRIDY [Suspect]
     Active Substance: PEGINTERFERON BETA-1A
     Indication: MULTIPLE SCLEROSIS
     Dosage: PATIENT REPORTED STARTED PLEGRIDY BEGINNING OF JULY AND INJECTED 63MCG PEN ON DAY 1, THEN 94MCG P...
     Route: 058
     Dates: start: 202007
  7. PLEGRIDY [Suspect]
     Active Substance: PEGINTERFERON BETA-1A
     Route: 065

REACTIONS (15)
  - Multiple sclerosis [Unknown]
  - Multiple sclerosis relapse [Unknown]
  - Tooth disorder [Unknown]
  - Injection site erythema [Unknown]
  - Influenza like illness [Unknown]
  - Platelet count increased [Not Recovered/Not Resolved]
  - Swelling [Unknown]
  - Platelet count decreased [Unknown]
  - Pain [Unknown]
  - Oral pain [Unknown]
  - Bone pain [Unknown]
  - Pain in extremity [Unknown]
  - Injection site bruising [Unknown]
  - Injection site pain [Unknown]
  - Headache [Unknown]

NARRATIVE: CASE EVENT DATE: 202007
